FAERS Safety Report 8463957 (Version 3)
Quarter: 2012Q4

REPORT INFORMATION
  Report Type: 
  Country: NZ (occurrence: NZ)
  Receive Date: 20120316
  Receipt Date: 20120920
  Transmission Date: 20130627
  Serious: Yes (Other)
  Sender: FDA-Public Use
  Company Number: PHHY2012NZ019965

PATIENT
  Age: 16 Year
  Sex: Male

DRUGS (4)
  1. CLOZARIL [Suspect]
     Indication: SCHIZOPHRENIA
     Dosage: 300 mg, BID
     Route: 048
     Dates: start: 20111215, end: 20111228
  2. CLOZARIL [Suspect]
     Dosage: 300 mg, BID
     Route: 048
     Dates: start: 20120308, end: 20120315
  3. CLOZARIL [Suspect]
     Dosage: 300 mg, BID
     Route: 048
  4. OLANZAPINE [Concomitant]
     Indication: PSYCHOTIC DISORDER
     Dosage: 10 mg, nocte
     Route: 048
     Dates: start: 20110501

REACTIONS (3)
  - Myocarditis [Recovered/Resolved]
  - Troponin T increased [Unknown]
  - Tachycardia [Unknown]
